FAERS Safety Report 8548426-9 (Version None)
Quarter: 2012Q3

REPORT INFORMATION
  Report Type: 
  Country: None (occurrence: None)
  Receive Date: 20120730
  Receipt Date: 20120724
  Transmission Date: 20120928
  Serious: Yes (Hospitalization, Other)
  Sender: FDA-Public Use
  Company Number: US-009507513-1207USA009589

PATIENT

DRUGS (8)
  1. SINEMET [Concomitant]
  2. MIRAPEX [Concomitant]
  3. LIPITOR [Concomitant]
  4. ACCUPRIL [Concomitant]
  5. PROPRANOLOL HYDROCHLORIDE [Concomitant]
  6. ZOLOFT [Concomitant]
  7. FOSAMAX [Suspect]
     Indication: BONE LOSS
     Dosage: 70 MG, QW
     Route: 048
     Dates: start: 20010101
  8. PROCARDIA [Concomitant]

REACTIONS (7)
  - ARTHRODESIS [None]
  - PAIN [None]
  - FEMUR FRACTURE [None]
  - OSTEOGENESIS IMPERFECTA [None]
  - JOINT DISLOCATION [None]
  - FALL [None]
  - HIP ARTHROPLASTY [None]
